FAERS Safety Report 12181382 (Version 2)
Quarter: 2016Q1

REPORT INFORMATION
  Report Type: Spontaneous
  Country: JP (occurrence: JP)
  Receive Date: 20160315
  Receipt Date: 20160325
  Transmission Date: 20160526
  Serious: Yes (Other)
  Sender: FDA-Public Use
  Company Number: JP-GILEAD-2016-0201709

PATIENT
  Age: 81 Year
  Sex: Male

DRUGS (1)
  1. HARVONI [Suspect]
     Active Substance: LEDIPASVIR\SOFOSBUVIR
     Indication: HEPATITIS
     Dosage: UNK
     Route: 048
     Dates: start: 201512, end: 201602

REACTIONS (7)
  - Tumour marker increased [Unknown]
  - Dysgeusia [Unknown]
  - Stomatitis [Unknown]
  - Alopecia [Unknown]
  - Hepatic cancer [Not Recovered/Not Resolved]
  - Pruritus [Unknown]
  - Limb discomfort [Unknown]

NARRATIVE: CASE EVENT DATE: 2016
